FAERS Safety Report 16476293 (Version 1)
Quarter: 2019Q2

REPORT INFORMATION
  Report Type: Spontaneous
  Country: FR (occurrence: FR)
  Receive Date: 20190626
  Receipt Date: 20190626
  Transmission Date: 20190711
  Serious: Yes (Other)
  Sender: FDA-Public Use
  Company Number: FR-AMGEN-FRASP2019098255

PATIENT
  Age: 87 Year
  Sex: Female
  Weight: 62 kg

DRUGS (2)
  1. NPLATE [Suspect]
     Active Substance: ROMIPLOSTIM
     Dosage: 180 MICROGRAM, QWK (EVERY THURSDAY)
     Route: 065
  2. NPLATE [Suspect]
     Active Substance: ROMIPLOSTIM
     Indication: IMMUNE THROMBOCYTOPENIC PURPURA
     Dosage: 250 MICROGRAM, QWK (EVERY THURSDAY)
     Route: 065

REACTIONS (6)
  - Patella fracture [Unknown]
  - Visual impairment [Unknown]
  - Fall [Unknown]
  - Device breakage [Unknown]
  - Hypoacusis [Unknown]
  - Platelet count abnormal [Unknown]
